FAERS Safety Report 6592908-6 (Version None)
Quarter: 2010Q1

REPORT INFORMATION
  Report Type: 
  Country: None (occurrence: None)
  Receive Date: 20100218
  Receipt Date: 20100218
  Transmission Date: 20100710
  Serious: No
  Sender: FDA-Public Use
  Company Number: None

PATIENT
  Age: 73 Year
  Sex: Male
  Weight: 66.14 kg

DRUGS (1)
  1. LINEZOLID [Suspect]
     Indication: INFECTION
     Dosage: 600 MG BID PO
     Route: 048
     Dates: start: 20090127, end: 20090203

REACTIONS (1)
  - HEPATIC ENZYME INCREASED [None]
